FAERS Safety Report 4860627-X (Version None)
Quarter: 2005Q4

REPORT INFORMATION
  Report Type: 
  Country: None (occurrence: None)
  Receive Date: 20051216
  Receipt Date: 20051128
  Transmission Date: 20060501
  Serious: Yes (Hospitalization)
  Sender: FDA-Public Use
  Company Number: 200514711BCC

PATIENT
  Age: 55 Year
  Sex: Female
  Weight: 113.3993 kg

DRUGS (6)
  1. ALEVE (CAPLET) [Suspect]
     Dosage: 220 MG, ORAL
     Route: 048
  2. LASIX [Concomitant]
  3. PREVACID [Concomitant]
  4. POTASSIUM CL [Concomitant]
  5. FOLIC ACID [Concomitant]
  6. LIBRIUM [Concomitant]

REACTIONS (2)
  - JUGULAR VEIN THROMBOSIS [None]
  - SKIN DISCOLOURATION [None]
